FAERS Safety Report 8457904-2 (Version None)
Quarter: 2012Q2

REPORT INFORMATION
  Report Type: 
  Country: None (occurrence: None)
  Receive Date: 20120323
  Receipt Date: 20111123
  Transmission Date: 20120825
  Serious: Yes (Other)
  Sender: FDA-Public Use
  Company Number: 163-21880-11100871

PATIENT
  Sex: Male
  Weight: 70.6704 kg

DRUGS (14)
  1. BACTRIM [Concomitant]
  2. METOPROLOL TARTRATE [Concomitant]
  3. PENTOXIFYLLINE [Concomitant]
  4. FUROSEMIDE [Concomitant]
  5. NEXIUM [Concomitant]
  6. POTASSIUM CHLORIDE [Concomitant]
  7. DECADRON [Concomitant]
  8. TAMSULOSIN HCL [Concomitant]
  9. REVLIMID [Suspect]
     Indication: MULTIPLE MYELOMA
     Dosage: 25 MG, DAILY X 21 DAYS, OFF 7 DAYS
     Dates: start: 20110908
  10. PROCHLORPERAZINE MALEATE [Concomitant]
  11. CRESTOR [Concomitant]
  12. METOPROLOL TARTRATE [Concomitant]
  13. ACYCLOVIR [Concomitant]
  14. ASPIRIN [Concomitant]

REACTIONS (9)
  - OEDEMA PERIPHERAL [None]
  - PALPITATIONS [None]
  - PARAESTHESIA [None]
  - OXYGEN SATURATION DECREASED [None]
  - ASTHENIA [None]
  - HYPOAESTHESIA [None]
  - FATIGUE [None]
  - DIARRHOEA [None]
  - BLOOD PRESSURE DECREASED [None]
